FAERS Safety Report 9406922 (Version 1)
Quarter: 2013Q3

REPORT INFORMATION
  Report Type: Spontaneous
  Country: US (occurrence: US)
  Receive Date: 20130718
  Receipt Date: 20130718
  Transmission Date: 20140515
  Serious: No
  Sender: FDA-Public Use
  Company Number: US-PFIZER INC-2013207533

PATIENT
  Age: 72 Year
  Sex: Male

DRUGS (1)
  1. INLYTA [Suspect]
     Indication: NEOPLASM MALIGNANT
     Dosage: 7 MG, 1X/DAY (5 MG AND 1 MG TAKE 1 TABLET TWICE A DAY WITH ONE 5 MG TOTAL: 7 MG)
     Route: 048

REACTIONS (2)
  - Disease progression [Unknown]
  - Neoplasm malignant [Unknown]
